FAERS Safety Report 4426365-2 (Version None)
Quarter: 2004Q3

REPORT INFORMATION
  Report Type: 
  Country: None (occurrence: None)
  Receive Date: 20040811
  Receipt Date: 20040720
  Transmission Date: 20050211
  Serious: Yes (Disabling)
  Sender: FDA-Public Use
  Company Number: A02200402286

PATIENT
  Age: 34 Year
  Sex: Female

DRUGS (11)
  1. PLAQUENIL [Suspect]
     Dosage: ORAL
     Route: 048
     Dates: start: 20020915, end: 20030315
  2. OCTAGAM - (IMMUNOGLOBULIN HUMAN NORMAL) - SOLUTION - 50 MG/ML [Suspect]
     Dosage: INTRAVENOUS NOS
     Route: 042
     Dates: start: 20000915, end: 20030915
  3. OCTAGAM - (IMMUNOGLOBULIN HUMAN NORMAL) - SOLUTION - 50 MG/ML [Suspect]
     Dosage: INTRAVENOUS NOS
     Route: 042
     Dates: start: 20040101, end: 20040101
  4. OCTAGAM - (IMMUNOGLOBULIN HUMAN NORMAL) - SOLUTION - 50 MG/ML [Suspect]
     Dosage: INTRAVENOUS NOS
     Route: 042
     Dates: start: 20030901, end: 20040115
  5. SOLUPRED - (PREDNISOLONE SODIUM SULFOBENZOATE) - TABLET - 20 MG [Suspect]
     Dosage: ORAL
     Route: 048
     Dates: start: 20040101, end: 20040101
  6. PROTHIADEN [Concomitant]
  7. LEXOMIL (BROMAZEPAM) [Concomitant]
  8. EFFEXOR [Concomitant]
  9. XANAX [Concomitant]
  10. LASIX [Concomitant]
  11. ALDACTONE [Concomitant]

REACTIONS (4)
  - CONDITION AGGRAVATED [None]
  - NODULAR REGENERATIVE HYPERPLASIA [None]
  - PORTAL HYPERTENSION [None]
  - SPLENOMEGALY [None]
